FAERS Safety Report 20577137 (Version 1)
Quarter: 2022Q1

REPORT INFORMATION
  Report Type: Spontaneous
  Country: CN (occurrence: CN)
  Receive Date: 20220310
  Receipt Date: 20220310
  Transmission Date: 20220423
  Serious: Yes (Other)
  Sender: FDA-Public Use
  Company Number: CN-BAYER-2022A034869

PATIENT
  Age: 69 Year
  Sex: Female
  Weight: 60 kg

DRUGS (1)
  1. AVELOX [Suspect]
     Active Substance: MOXIFLOXACIN HYDROCHLORIDE
     Indication: Bronchitis
     Dosage: 0.4 G, QD
     Route: 048
     Dates: start: 20220220, end: 20220220

REACTIONS (3)
  - Gastrointestinal disorder [Recovered/Resolved]
  - Haematemesis [Recovered/Resolved]
  - Off label use [None]

NARRATIVE: CASE EVENT DATE: 20220220
